FAERS Safety Report 7909104-X (Version None)
Quarter: 2011Q4

REPORT INFORMATION
  Report Type: 
  Country: None (occurrence: None)
  Receive Date: 20111111
  Receipt Date: 20111108
  Transmission Date: 20120403
  Serious: Yes (Hospitalization)
  Sender: FDA-Public Use
  Company Number: JP-PFIZER INC-2011267805

PATIENT
  Age: 92 Year
  Sex: Female

DRUGS (4)
  1. NORVASC [Suspect]
  2. ALDACTONE [Suspect]
     Dosage: 25 MG, UNK
     Dates: start: 20110831
  3. LASIX [Suspect]
  4. LANIRAPID [Suspect]

REACTIONS (3)
  - ECZEMA [None]
  - PRURITUS [None]
  - DERMATITIS EXFOLIATIVE [None]
